FAERS Safety Report 6459638-2 (Version None)
Quarter: 2009Q4

REPORT INFORMATION
  Report Type: 
  Country: None (occurrence: None)
  Receive Date: 20091127
  Receipt Date: 20090915
  Transmission Date: 20100525
  Serious: No
  Sender: FDA-Public Use
  Company Number: US-AMGEN-KDL359377

PATIENT
  Sex: Female

DRUGS (11)
  1. ENBREL [Suspect]
     Indication: RHEUMATOID ARTHRITIS
     Route: 058
     Dates: start: 20090724
  2. ARAVA [Concomitant]
  3. AVAPRO [Concomitant]
  4. ZETIA [Concomitant]
  5. ACTOS [Concomitant]
  6. INSULIN [Concomitant]
  7. VASOTEC [Concomitant]
  8. IRON [Concomitant]
  9. VITAMIN D [Concomitant]
  10. CLARITIN [Concomitant]
  11. ADVAIR DISKUS 100/50 [Concomitant]

REACTIONS (3)
  - ABDOMINAL PAIN [None]
  - DIZZINESS [None]
  - NAUSEA [None]
